FAERS Safety Report 8462005-3 (Version None)
Quarter: 2012Q2

REPORT INFORMATION
  Report Type: 
  Country: None (occurrence: None)
  Receive Date: 20120625
  Receipt Date: 20120615
  Transmission Date: 20120825
  Serious: Yes (Hospitalization)
  Sender: FDA-Public Use
  Company Number: CA-JNJFOC-20120608025

PATIENT
  Sex: Male
  Weight: 77.4 kg

DRUGS (3)
  1. REMICADE [Suspect]
     Indication: CROHN'S DISEASE
     Dosage: 22 INFUSIONS TILL DATE
     Route: 042
  2. RABEPRAZOLE SODIUM [Concomitant]
     Indication: GASTROOESOPHAGEAL REFLUX DISEASE
     Route: 065
  3. EFFEXOR [Concomitant]
     Indication: DEPRESSION
     Route: 065

REACTIONS (3)
  - ELECTRIC SHOCK [None]
  - DIZZINESS [None]
  - LOSS OF CONSCIOUSNESS [None]
